FAERS Safety Report 19865932 (Version 1)
Quarter: 2021Q3

REPORT INFORMATION
  Report Type: Spontaneous
  Country: US (occurrence: US)
  Receive Date: 20210921
  Receipt Date: 20210921
  Transmission Date: 20211014
  Serious: Yes (Hospitalization)
  Sender: FDA-Public Use
  Company Number: None

PATIENT
  Age: 67 Year
  Sex: Male

DRUGS (13)
  1. SIMVASTATIN. [Concomitant]
     Active Substance: SIMVASTATIN
  2. CARVEDILOL. [Concomitant]
     Active Substance: CARVEDILOL
  3. TOPICAL TRIAMCINOLONE [Concomitant]
  4. TUMERIC ROOT EXTRACT [Concomitant]
  5. BAMLANIVIMAB/ETESEVIMAB [Suspect]
     Active Substance: BAMLANIVIMAB\ETESEVIMAB
     Indication: COVID-19
     Route: 042
     Dates: start: 20210419, end: 20210419
  6. ASPIRIN. [Concomitant]
     Active Substance: ASPIRIN
  7. MAGNESIUM OXIDE. [Concomitant]
     Active Substance: MAGNESIUM OXIDE
  8. MULTIVITAMIN [Concomitant]
     Active Substance: VITAMINS
  9. ALPHA LIPOIC ACID [Concomitant]
     Active Substance: .ALPHA.-LIPOIC ACID
  10. TOPICAL DICLOFENAC [Concomitant]
  11. PYRIDOXINE [Concomitant]
     Active Substance: PYRIDOXINE
  12. COENZYME Q10 [Concomitant]
     Active Substance: DIETARY SUPPLEMENT\UBIDECARENONE
  13. FISH OIL [Concomitant]
     Active Substance: FISH OIL

REACTIONS (12)
  - Hypokalaemia [None]
  - Cardio-respiratory arrest [None]
  - Bradycardia [None]
  - Nausea [None]
  - Syncope [None]
  - Dizziness [None]
  - Seizure [None]
  - Fatigue [None]
  - White blood cell count decreased [None]
  - Blood sodium decreased [None]
  - Asthenia [None]
  - Blood calcium decreased [None]

NARRATIVE: CASE EVENT DATE: 20210419
